FAERS Safety Report 6552855-2 (Version None)
Quarter: 2010Q1

REPORT INFORMATION
  Report Type: 
  Country: None (occurrence: None)
  Receive Date: 20100122
  Receipt Date: 20100112
  Transmission Date: 20100710
  Serious: Yes (Other)
  Sender: FDA-Public Use
  Company Number: A-CH2010-33025

PATIENT
  Age: 70 Year
  Sex: Female

DRUGS (6)
  1. TRACLEER [Suspect]
     Indication: PULMONARY ARTERIAL HYPERTENSION
     Dosage: ORAL
     Route: 048
  2. RAFASSAL (AMINOSALICYLIC ACID) [Concomitant]
  3. LEVOTHYROXINE SODIUM [Concomitant]
  4. PRILOSEC [Concomitant]
  5. ASCORBIC ACID [Concomitant]
  6. VITAMIN E [Concomitant]

REACTIONS (3)
  - LUNG INFILTRATION MALIGNANT [None]
  - METASTASES TO LUNG [None]
  - PANCREATIC CARCINOMA [None]
